FAERS Safety Report 4985449-0 (Version None)
Quarter: 2006Q2

REPORT INFORMATION
  Report Type: 
  Country: None (occurrence: None)
  Receive Date: 20060428
  Receipt Date: 20041210
  Transmission Date: 20061013
  Serious: No
  Sender: FDA-Public Use
  Company Number: US-GLAXOSMITHKLINE-A0539347A

PATIENT
  Age: 70 Year
  Sex: Female

DRUGS (33)
  1. FLOVENT [Suspect]
     Indication: ASTHMA
     Dosage: 3PUFF TWICE PER DAY
     Route: 055
     Dates: start: 19980101
  2. SEREVENT [Concomitant]
     Route: 055
  3. SULFAMETHOXAZOLE [Concomitant]
     Route: 048
  4. FUROSEMIDE [Concomitant]
     Route: 048
  5. BETAMETHASONE [Concomitant]
     Route: 065
  6. FOSINOPRIL [Concomitant]
     Route: 048
  7. PRAVACHOL [Concomitant]
     Route: 048
  8. CLARINEX [Concomitant]
     Dosage: 5MG UNKNOWN
     Route: 048
  9. FLUZONE [Concomitant]
     Route: 065
  10. DOCUSATE SODIUM [Concomitant]
     Route: 048
  11. FERROUS SULFATE TAB [Concomitant]
     Route: 048
  12. METOLAZONE [Concomitant]
     Route: 048
  13. METHYLPREDNISOLONE [Concomitant]
     Route: 065
  14. GUAIFENEX [Concomitant]
     Route: 048
  15. LEVAQUIN [Concomitant]
     Route: 048
  16. METRONIDAZOLE [Concomitant]
     Route: 048
  17. KLOR-CON [Concomitant]
     Route: 048
  18. RANITIDINE [Concomitant]
     Route: 048
  19. MONOPRIL [Concomitant]
     Route: 048
  20. ALBUTEROL SULFATE AUTOHALER [Concomitant]
     Route: 055
  21. CLINDAMYCIN [Concomitant]
     Route: 048
  22. HYDROCODONE BITARTRATE [Concomitant]
     Route: 048
  23. METOLAZONE [Concomitant]
     Route: 048
  24. NASONEX [Concomitant]
     Route: 045
  25. BACTROBAN [Concomitant]
     Route: 065
  26. CLOTRIMAZOLE [Concomitant]
     Route: 065
  27. DICLOXACILLIN [Concomitant]
     Route: 048
  28. OXYCODONE HCL [Concomitant]
     Route: 048
  29. NITROQUICK [Concomitant]
     Route: 048
  30. DOXYCYCLINE [Concomitant]
     Route: 048
  31. ERYTHROCIN [Concomitant]
     Route: 048
  32. IMDUR [Concomitant]
     Route: 048
  33. AZMACORT [Concomitant]
     Route: 065

REACTIONS (5)
  - DRUG INEFFECTIVE [None]
  - DYSPNOEA EXACERBATED [None]
  - PHARMACEUTICAL PRODUCT COMPLAINT [None]
  - SLEEP DISORDER [None]
  - WHEEZING [None]
